FAERS Safety Report 26215193 (Version 1)
Quarter: 2025Q4

REPORT INFORMATION
  Report Type: Spontaneous
  Country: US (occurrence: US)
  Receive Date: 20251230
  Receipt Date: 20251230
  Transmission Date: 20260117
  Serious: Yes (Hospitalization, Other)
  Sender: AMNEAL
  Company Number: US-AMNEAL PHARMACEUTICALS-2025-AMRX-04998

PATIENT
  Age: 18 Year
  Sex: Male

DRUGS (1)
  1. BUPROPION HYDROCHLORIDE SR [Suspect]
     Active Substance: BUPROPION HYDROCHLORIDE
     Indication: Product used for unknown indication
     Dosage: 30 TABLETS OF 300 MG
     Route: 048

REACTIONS (3)
  - Intestinal pseudo-obstruction [Recovered/Resolved]
  - Intentional overdose [Unknown]
  - Seizure like phenomena [Recovered/Resolved]
